FAERS Safety Report 12484247 (Version 1)
Quarter: 2016Q2

REPORT INFORMATION
  Report Type: Spontaneous
  Country: GB (occurrence: GB)
  Receive Date: 20160621
  Receipt Date: 20160621
  Transmission Date: 20160815
  Serious: Yes (Disabling, Other)
  Sender: FDA-Public Use
  Company Number: GB-TEVA-667391ACC

PATIENT
  Age: 53 Year
  Sex: Male
  Weight: 78 kg

DRUGS (3)
  1. SERTRALINE [Suspect]
     Active Substance: SERTRALINE HYDROCHLORIDE
     Indication: DEPRESSION
     Route: 048
     Dates: start: 20160510, end: 20160520
  2. RAMIPRIL. [Concomitant]
     Active Substance: RAMIPRIL
     Indication: HYPERTENSION
     Route: 048
  3. LORATADINE. [Concomitant]
     Active Substance: LORATADINE
     Indication: SEASONAL ALLERGY
     Route: 048

REACTIONS (2)
  - Wheezing [Not Recovered/Not Resolved]
  - Dyspnoea at rest [Not Recovered/Not Resolved]

NARRATIVE: CASE EVENT DATE: 20160510
